FAERS Safety Report 6411309-4 (Version None)
Quarter: 2009Q4

REPORT INFORMATION
  Report Type: 
  Country: None (occurrence: None)
  Receive Date: 20091023
  Receipt Date: 20091013
  Transmission Date: 20100525
  Serious: Yes (Other)
  Sender: FDA-Public Use
  Company Number: US-PFIZER INC-2006152126

PATIENT
  Sex: Female
  Weight: 85 kg

DRUGS (16)
  1. DEPO-PROVERA [Suspect]
     Indication: CONTRACEPTION
     Dosage: UNK
     Route: 030
     Dates: start: 19790101, end: 19940101
  2. DEPO-PROVERA [Suspect]
     Dosage: UNK
     Route: 030
     Dates: start: 19960101, end: 20010101
  3. HYDROCHLOROTHIAZIDE [Concomitant]
     Indication: HYPERTENSION
     Dosage: UNK
     Dates: start: 20000101, end: 20060101
  4. CELEXA [Concomitant]
     Indication: DEPRESSION
     Dosage: UNK
     Dates: start: 19990101
  5. CELEXA [Concomitant]
     Indication: ANXIETY
  6. CELEXA [Concomitant]
     Indication: STRESS
  7. METROGEL [Concomitant]
  8. DIFLUCAN [Concomitant]
  9. TERAZOL 1 [Concomitant]
  10. MONISTAT [Concomitant]
  11. FLEGYL [Concomitant]
  12. CLEOCIN [Concomitant]
  13. PRILOSEC [Concomitant]
  14. NORVASC [Concomitant]
  15. ZYRTEC [Concomitant]
  16. CLARITIN [Concomitant]

REACTIONS (5)
  - FOOT FRACTURE [None]
  - INTERVERTEBRAL DISC DEGENERATION [None]
  - MENSTRUAL DISORDER [None]
  - OSTEOPOROSIS [None]
  - OSTEOPOROTIC FRACTURE [None]
